FAERS Safety Report 8887959 (Version 1)
Quarter: 2012Q4

REPORT INFORMATION
  Report Type: Spontaneous
  Country: US (occurrence: None)
  Receive Date: 20121101
  Receipt Date: 20121101
  Transmission Date: 20130627
  Serious: No
  Sender: FDA-Public Use
  Company Number: None

PATIENT
  Age: 96 Year
  Sex: Male
  Weight: 96 kg

DRUGS (1)
  1. ARIPIPRAZOLE [Suspect]
     Indication: DEPRESSION
     Dosage: 10 MG EVERY DAY PO
     Route: 048
     Dates: start: 20120217, end: 20120620

REACTIONS (1)
  - Suicidal ideation [None]
